FAERS Safety Report 15927692 (Version 1)
Quarter: 2019Q1

REPORT INFORMATION
  Report Type: Spontaneous
  Country: US (occurrence: US)
  Receive Date: 20190206
  Receipt Date: 20190206
  Transmission Date: 20190417
  Serious: No
  Sender: FDA-Public Use
  Company Number: US-TEVA-2019-US-996444

PATIENT
  Age: 48 Year
  Sex: Female

DRUGS (3)
  1. NORTREL [Suspect]
     Active Substance: ETHINYL ESTRADIOL\NORETHINDRONE
     Dosage: DOSE STRENGTH:  1/0.035
     Route: 065
     Dates: start: 20190106
  2. NORTREL [Suspect]
     Active Substance: ETHINYL ESTRADIOL\NORETHINDRONE
     Indication: CONTRACEPTION
     Dosage: DOSE STRENGTH:  0.5/0.035
     Route: 065
     Dates: start: 20190106
  3. NORTREL [Suspect]
     Active Substance: ETHINYL ESTRADIOL\NORETHINDRONE
     Dosage: DOSE STRENGTH:  0.7/0.035
     Route: 065
     Dates: start: 20190106

REACTIONS (2)
  - Nausea [Unknown]
  - Hot flush [Unknown]

NARRATIVE: CASE EVENT DATE: 20190107
